FAERS Safety Report 9701729 (Version 2)
Quarter: 2013Q4

REPORT INFORMATION
  Report Type: Spontaneous
  Country: US (occurrence: US)
  Receive Date: 20131119
  Receipt Date: 20131119
  Transmission Date: 20140711
  Serious: Yes (Other)
  Sender: FDA-Public Use
  Company Number: -SAVIENT-2012S1000111

PATIENT
  Age: 48 Year
  Sex: Male
  Weight: 82.74 kg

DRUGS (10)
  1. KRYSTEXXA [Suspect]
     Indication: GOUT
     Route: 042
     Dates: start: 20120907, end: 20120907
  2. KRYSTEXXA [Suspect]
     Indication: GOUT
     Route: 042
     Dates: start: 20120824, end: 20120824
  3. PREDNISONE [Concomitant]
     Indication: PRODUCT USED FOR UNKNOWN INDICATION
  4. LYRICA [Concomitant]
     Indication: PRODUCT USED FOR UNKNOWN INDICATION
  5. LISINOPRIL [Concomitant]
     Indication: PRODUCT USED FOR UNKNOWN INDICATION
  6. ALLOPURINOL [Concomitant]
     Indication: PRODUCT USED FOR UNKNOWN INDICATION
  7. BACTRIM [Concomitant]
     Indication: PRODUCT USED FOR UNKNOWN INDICATION
  8. OXYCODONE [Concomitant]
     Indication: PAIN
  9. BENADRYL /01563701/ [Concomitant]
     Indication: ALLERGY PROPHYLAXIS
     Route: 042
  10. SOLU-MEDROL [Concomitant]
     Indication: ALLERGY PROPHYLAXIS
     Route: 042

REACTIONS (1)
  - Anaphylactic reaction [Recovered/Resolved]
